FAERS Safety Report 24288649 (Version 1)
Quarter: 2024Q3

REPORT INFORMATION
  Report Type: Spontaneous
  Country: ES (occurrence: ES)
  Receive Date: 20240906
  Receipt Date: 20240906
  Transmission Date: 20241016
  Serious: Yes (Hospitalization, Other)
  Sender: GLAXOSMITHKLINE
  Company Number: ES-GLAXOSMITHKLINE-ES2024GSK109275

PATIENT

DRUGS (4)
  1. LAMOTRIGINE [Suspect]
     Active Substance: LAMOTRIGINE
     Indication: Petit mal epilepsy
     Dosage: UNK
  2. LAMOTRIGINE [Suspect]
     Active Substance: LAMOTRIGINE
     Indication: Epilepsy
  3. VALPROIC ACID [Concomitant]
     Active Substance: VALPROIC ACID
     Indication: Petit mal epilepsy
     Dosage: UNK
  4. VALPROIC ACID [Concomitant]
     Active Substance: VALPROIC ACID
     Indication: Epilepsy

REACTIONS (15)
  - Toxic epidermal necrolysis [Unknown]
  - Rash [Unknown]
  - Blister [Unknown]
  - Skin exfoliation [Unknown]
  - Circumoral oedema [Unknown]
  - Conjunctival hyperaemia [Unknown]
  - Odynophagia [Unknown]
  - Rash erythematous [Unknown]
  - Skin lesion [Recovering/Resolving]
  - Koebner phenomenon [Unknown]
  - Lip erosion [Unknown]
  - Pharyngeal erosion [Unknown]
  - Vulvovaginal erythema [Unknown]
  - Erythema multiforme [Unknown]
  - Erythema [Unknown]
